FAERS Safety Report 9055291 (Version 1)
Quarter: 2013Q1

REPORT INFORMATION
  Report Type: Spontaneous
  Country: GB (occurrence: GB)
  Receive Date: 20130209
  Receipt Date: 20130209
  Transmission Date: 20140127
  Serious: Yes (Other)
  Sender: FDA-Public Use
  Company Number: GB-AMGEN-GBRSP2013008547

PATIENT
  Age: 85 Year
  Sex: Female

DRUGS (6)
  1. PROLIA [Suspect]
     Indication: OSTEOPOROSIS
     Dosage: 60 MG, UNK
     Route: 058
     Dates: start: 20121122
  2. ADCAL D3 [Concomitant]
     Dosage: 1 DF, QD
     Route: 048
  3. ASPIRIN [Concomitant]
     Dosage: 75 MG, UNK
     Route: 048
  4. CANDESARTAN [Concomitant]
     Dosage: 4 MG, UNK
     Route: 048
  5. LIPITOR [Concomitant]
     Dosage: 10 MG, QD
     Route: 048
  6. TRIMETHOPRIM [Concomitant]
     Dosage: 100 MG, UNK
     Route: 048

REACTIONS (3)
  - Back pain [Recovering/Resolving]
  - Bone pain [Recovering/Resolving]
  - Arthralgia [Recovering/Resolving]
